FAERS Safety Report 16498055 (Version 2)
Quarter: 2023Q1

REPORT INFORMATION
  Report Type: Spontaneous
  Country: NL (occurrence: NL)
  Receive Date: 20190628
  Receipt Date: 20230111
  Transmission Date: 20230418
  Serious: Yes (Congenital Anomaly, Other)
  Sender: FDA-Public Use
  Company Number: PHHY2019NL147083

PATIENT

DRUGS (5)
  1. LEVETIRACETAM [Suspect]
     Active Substance: LEVETIRACETAM
     Indication: Foetal exposure during pregnancy
     Dosage: (MATERNAL DOSE: 1000 MG, DAILY)
     Route: 064
  2. LEVETIRACETAM [Suspect]
     Active Substance: LEVETIRACETAM
     Dosage: (MATERNAL DOSE: 1000 MG, DAILY)
     Route: 064
     Dates: end: 2014
  3. LAMOTRIGINE [Suspect]
     Active Substance: LAMOTRIGINE
     Indication: Foetal exposure during pregnancy
     Dosage: (MATERNAL DOSE: UNK)
     Route: 064
  4. VIMPAT [Suspect]
     Active Substance: LACOSAMIDE
     Indication: Foetal exposure during pregnancy
     Dosage: (MATERNAL DOSE: 150 MG, QD, (150 MILLIGRAM, QD)
     Route: 064
  5. VALPROIC ACID [Suspect]
     Active Substance: VALPROIC ACID
     Indication: Foetal exposure during pregnancy
     Dosage: (MATERNAL DOSE: UNK)
     Route: 064

REACTIONS (1)
  - Developmental hip dysplasia [Unknown]
